FAERS Safety Report 9649599 (Version 2)
Quarter: 2013Q4

REPORT INFORMATION
  Report Type: Report from Study
  Country: BR (occurrence: BR)
  Receive Date: 20131028
  Receipt Date: 20131114
  Transmission Date: 20140711
  Serious: Yes (Hospitalization)
  Sender: FDA-Public Use
  Company Number: BR-ABBVIE-13P-020-1160446-00

PATIENT
  Sex: Female
  Weight: 43 kg

DRUGS (4)
  1. HUMIRA [Suspect]
     Indication: PSORIATIC ARTHROPATHY
     Route: 058
  2. HUMIRA [Suspect]
     Indication: PSORIASIS
  3. CHEMOTHERAPY [Suspect]
     Indication: PRODUCT USED FOR UNKNOWN INDICATION
  4. METHOTREXATE [Concomitant]
     Indication: ARTHRITIS
     Route: 048
     Dates: start: 201307

REACTIONS (8)
  - Angiopathy [Unknown]
  - Varicose vein [Unknown]
  - Local swelling [Recovering/Resolving]
  - Anaemia [Unknown]
  - Phlebitis [Recovered/Resolved]
  - Pruritus generalised [Not Recovered/Not Resolved]
  - Skin fissures [Not Recovered/Not Resolved]
  - Activities of daily living impaired [Not Recovered/Not Resolved]
